FAERS Safety Report 22124116 (Version 1)
Quarter: 2023Q1

REPORT INFORMATION
  Report Type: Spontaneous
  Country: US (occurrence: US)
  Receive Date: 20230322
  Receipt Date: 20230322
  Transmission Date: 20230418
  Serious: No
  Sender: FDA-Public Use
  Company Number: US-MYLANLABS-2023M1029680

PATIENT
  Sex: Female
  Weight: 48.99 kg

DRUGS (4)
  1. LIPITOR [Suspect]
     Active Substance: ATORVASTATIN CALCIUM
     Indication: Blood cholesterol
     Dosage: 10 MILLIGRAM
     Route: 065
  2. PREMARIN [Suspect]
     Active Substance: ESTROGENS, CONJUGATED
     Indication: Dyspareunia
     Dosage: 0.625 MILLIGRAM PER GRAM (TWICE A WEEK)
     Route: 065
     Dates: start: 202209
  3. ROSUVASTATIN [Concomitant]
     Active Substance: ROSUVASTATIN
     Indication: Blood cholesterol
     Dosage: 5 MILLIGRAM (4 TIMES A WEEK)
     Route: 065
  4. QUINAPRIL [Concomitant]
     Active Substance: QUINAPRIL
     Indication: Angiotensin converting enzyme
     Dosage: UNK
     Route: 065

REACTIONS (1)
  - Muscle disorder [Unknown]
